FAERS Safety Report 8780987 (Version 1)
Quarter: 2012Q4

REPORT INFORMATION
  Report Type: 
  Country: FR (occurrence: FR)
  Receive Date: 20120913
  Receipt Date: 20120913
  Transmission Date: 20130627
  Serious: Yes (Hospitalization, Other)
  Sender: FDA-Public Use
  Company Number: FR-PFIZER INC-2012006968

PATIENT
  Age: 61 Year
  Sex: Female
  Weight: 83 kg

DRUGS (2)
  1. CELEBREX [Suspect]
     Indication: OSTEOARTHRITIS
     Dosage: 200 mg, daily
     Dates: start: 20110408, end: 20110606
  2. DAFALGAN [Concomitant]
     Indication: MUSCULOSKELETAL PAIN
     Dosage: 1 DF, 4x/day
     Route: 048
     Dates: start: 20110408

REACTIONS (3)
  - Transient ischaemic attack [Recovered/Resolved]
  - Hypertension [Unknown]
  - Dyslipidaemia [Unknown]
